FAERS Safety Report 5423122-5 (Version None)
Quarter: 2007Q3

REPORT INFORMATION
  Report Type: 
  Country: None (occurrence: None)
  Receive Date: 20070821
  Receipt Date: 20070809
  Transmission Date: 20080115
  Serious: Yes (Other)
  Sender: FDA-Public Use
  Company Number: 17233

PATIENT
  Age: 57 Year
  Sex: Female

DRUGS (1)
  1. ANZATAX                                  ( PACLITAXEL) [Suspect]
     Indication: OVARIAN CANCER
     Dosage: 283 MG IV
     Route: 042
     Dates: start: 20070713, end: 20070713

REACTIONS (2)
  - HYPOTENSION [None]
  - LARYNGOSPASM [None]
